FAERS Safety Report 5227482-X (Version None)
Quarter: 2007Q1

REPORT INFORMATION
  Report Type: 
  Country: None (occurrence: None)
  Receive Date: 20061201
  Receipt Date: 20061010
  Transmission Date: 20070707
  Serious: No
  Sender: FDA-Public Use
  Company Number: US200610001926

PATIENT
  Sex: Female

DRUGS (10)
  1. CYMBALTA [Suspect]
     Indication: FIBROMYALGIA
     Dosage: SEE IMAGE
     Dates: end: 20061008
  2. CYMBALTA [Suspect]
     Indication: FIBROMYALGIA
     Dosage: SEE IMAGE
     Dates: start: 20060901
  3. GLUCOPHAGE [Concomitant]
  4. AVANDIA [Concomitant]
  5. PLAQUENIL [Concomitant]
  6. TIZANIDINE HCL [Concomitant]
  7. GABAPENTIN [Concomitant]
  8. BUSPAR /AUS/(BUSPIRONE HYDROCHLORIDE) [Concomitant]
  9. TRAZODONE HCL [Concomitant]
  10. HYDROCODONE BITARTRATE + ACETAMINOPHEN [Concomitant]

REACTIONS (6)
  - ADVERSE EVENT [None]
  - DIARRHOEA [None]
  - FOOD AVERSION [None]
  - NAUSEA [None]
  - PAROSMIA [None]
  - VIRAL INFECTION [None]
